FAERS Safety Report 4595737-8 (Version None)
Quarter: 2005Q1

REPORT INFORMATION
  Report Type: 
  Country: None (occurrence: None)
  Receive Date: 20050224
  Receipt Date: 20050210
  Transmission Date: 20050727
  Serious: Yes (Hospitalization)
  Sender: FDA-Public Use
  Company Number: FRP05000128

PATIENT
  Age: 65 Year
  Sex: Female
  Weight: 62 kg

DRUGS (6)
  1. ACTONEL [Suspect]
     Dosage: ORAL
     Route: 048
     Dates: start: 20010101, end: 20041130
  2. DICLOFENAC SODIUM [Suspect]
     Dosage: ORAL
     Route: 048
     Dates: start: 20041107, end: 20041130
  3. MAALOX (MAGNESIUM HYDROXIDE, ALUMINIUM HYDROXIDE GEL) [Suspect]
     Dosage: ORAL
     Route: 048
     Dates: start: 19800101, end: 20041130
  4. MYOLASTAN (TETRAZEPAM) [Suspect]
     Dosage: 150 MG, DAILY, ORAL
     Route: 048
     Dates: start: 20041107, end: 20041130
  5. LEXOMIL (BROMAZEPAM) [Suspect]
     Dosage: 6 MG, DAILY, ORAL
     Route: 048
     Dates: start: 20000101, end: 20041130
  6. ARTOTEC (MISOPROSTOL, DICLOFENAC SODIUM) [Suspect]
     Dosage: ORAL
     Route: 048
     Dates: start: 20000101, end: 20041130

REACTIONS (2)
  - AGRANULOCYTOSIS [None]
  - PYREXIA [None]
